FAERS Safety Report 11499760 (Version 1)
Quarter: 2015Q3

REPORT INFORMATION
  Report Type: Spontaneous
  Country: NL (occurrence: NL)
  Receive Date: 20150914
  Receipt Date: 20150914
  Transmission Date: 20151125
  Serious: Yes (Life-Threatening, Hospitalization)
  Sender: FDA-Public Use
  Company Number: NL-ASTRAZENECA-2015SE87610

PATIENT
  Age: 17585 Day
  Sex: Female
  Weight: 65 kg

DRUGS (2)
  1. SEROQUEL [Suspect]
     Active Substance: QUETIAPINE FUMARATE
     Indication: PSYCHOTIC DISORDER
     Route: 048
     Dates: start: 2005, end: 20150810
  2. CAMCOLIT [Concomitant]
     Route: 048
     Dates: start: 1996

REACTIONS (1)
  - Cardiac disorder [Recovered/Resolved with Sequelae]

NARRATIVE: CASE EVENT DATE: 20150608
